FAERS Safety Report 5221518-8 (Version None)
Quarter: 2007Q1

REPORT INFORMATION
  Report Type: 
  Country: None (occurrence: None)
  Receive Date: 20070126
  Receipt Date: 20070118
  Transmission Date: 20070707
  Serious: Yes (Other)
  Sender: FDA-Public Use
  Company Number: FR-PFIZER INC-2007005658

PATIENT
  Sex: Male

DRUGS (1)
  1. LIPUR [Suspect]
     Indication: HYPERTRIGLYCERIDAEMIA
     Dates: start: 20060101, end: 20070101

REACTIONS (9)
  - ABDOMINAL DISTENSION [None]
  - ABDOMINAL PAIN [None]
  - DIARRHOEA [None]
  - DRUG TOXICITY [None]
  - FATIGUE [None]
  - HEPATIC PAIN [None]
  - MYALGIA [None]
  - NAUSEA [None]
  - VOMITING [None]
